FAERS Safety Report 12721144 (Version 2)
Quarter: 2016Q3

REPORT INFORMATION
  Report Type: Report from Study
  Country: IN (occurrence: IN)
  Receive Date: 20160907
  Receipt Date: 20160914
  Transmission Date: 20161109
  Serious: Yes (Death)
  Sender: FDA-Public Use
  Company Number: PHHO2016IN012991

PATIENT
  Age: 82 Year
  Sex: Male
  Weight: 74.7 kg

DRUGS (10)
  1. URIMAX D [Concomitant]
     Indication: BENIGN PROSTATIC HYPERPLASIA
     Dosage: 04 MG, QD
     Route: 048
     Dates: start: 20160405
  2. LDNIL [Concomitant]
     Indication: CORONARY ARTERY DISEASE
     Dosage: 10+160 MG, QD
     Route: 048
     Dates: start: 20151226
  3. ROSYCAP [Concomitant]
     Indication: CORONARY ARTERY DISEASE
     Dosage: 20 MG, QD
     Route: 048
     Dates: start: 20151226
  4. ENTRESTO [Suspect]
     Active Substance: SACUBITRIL\VALSARTAN
     Indication: CARDIAC FAILURE CHRONIC
     Dosage: 100 MG, BID
     Route: 048
     Dates: start: 20160327, end: 20160406
  5. PLAGERINE-A [Concomitant]
     Indication: CORONARY ARTERY DISEASE
     Dosage: 75+75 MG, OD
     Route: 048
     Dates: start: 20080317
  6. LASILACTONE [Concomitant]
     Active Substance: FUROSEMIDE\SPIRONOLACTONE
     Indication: CARDIAC FAILURE
     Dosage: 20+50 MG, QD
     Route: 048
     Dates: start: 20151226
  7. LIVOGEN [Concomitant]
     Indication: ANAEMIA
     Dosage: 1500 UG, QD
     Route: 048
     Dates: start: 20120530
  8. NUROKIND PLUS [Concomitant]
     Indication: ASTHENIA
     Dosage: 1.5+10+100+1500 MG/MCG, QD
     Route: 048
     Dates: start: 20151226
  9. AMLODAC [Concomitant]
     Active Substance: AMLODIPINE BESYLATE
     Indication: CARDIAC FAILURE
     Dosage: 5 MG, QD
     Route: 048
     Dates: start: 20151226
  10. ISOLAZINE [Concomitant]
     Indication: CARDIAC FAILURE
     Dosage: UNK
     Dates: start: 20160407

REACTIONS (1)
  - Sudden death [Fatal]

NARRATIVE: CASE EVENT DATE: 20160829
